FAERS Safety Report 9685981 (Version 2)
Quarter: 2013Q4

REPORT INFORMATION
  Report Type: Spontaneous
  Country: US (occurrence: US)
  Receive Date: 20131113
  Receipt Date: 20131113
  Transmission Date: 20140711
  Serious: No
  Sender: FDA-Public Use
  Company Number: US-ALLERGAN-1310281US

PATIENT
  Age: 82 Year
  Sex: Female

DRUGS (4)
  1. COMBIGAN[R] [Suspect]
     Indication: GLAUCOMA
     Dosage: 2 GTT, BID
     Route: 047
  2. COMBIGAN[R] [Suspect]
     Dosage: UNK
  3. XALATAN [Suspect]
     Indication: PRODUCT USED FOR UNKNOWN INDICATION
  4. LATANAPROST/TIMOLOL [Concomitant]
     Indication: GLAUCOMA

REACTIONS (6)
  - Lip dry [Not Recovered/Not Resolved]
  - Dry throat [Not Recovered/Not Resolved]
  - Lip dry [Not Recovered/Not Resolved]
  - Wrong technique in drug usage process [Unknown]
  - Dry mouth [Not Recovered/Not Resolved]
  - Dry mouth [Not Recovered/Not Resolved]
